FAERS Safety Report 8253014-8 (Version None)
Quarter: 2012Q2

REPORT INFORMATION
  Report Type: 
  Country: None (occurrence: None)
  Receive Date: 20120402
  Receipt Date: 20120301
  Transmission Date: 20120825
  Serious: No
  Sender: FDA-Public Use
  Company Number: US-AMGEN-USASP2012011228

PATIENT
  Age: 60 Year
  Sex: Female

DRUGS (1)
  1. ENBREL [Suspect]
     Indication: PSORIASIS
     Dosage: 50 MG, 2 TIMES/WK
     Dates: start: 20120217

REACTIONS (6)
  - MEMORY IMPAIRMENT [None]
  - INJECTION SITE HAEMORRHAGE [None]
  - BACK PAIN [None]
  - DRUG INEFFECTIVE [None]
  - DIABETES MELLITUS [None]
  - INJURY [None]
